FAERS Safety Report 15065366 (Version 1)
Quarter: 2018Q3

REPORT INFORMATION
  Report Type: Report from Study
  Country: CA (occurrence: CA)
  Receive Date: 20180626
  Receipt Date: 20180626
  Transmission Date: 20181010
  Serious: Yes (Hospitalization, Other)
  Sender: FDA-Public Use
  Company Number: CA-BRISTOL-MYERS SQUIBB COMPANY-BMS-2017-059802

PATIENT
  Age: 66 Year
  Sex: Female

DRUGS (3)
  1. PREGABALIN. [Concomitant]
     Active Substance: PREGABALIN
     Indication: PRODUCT USED FOR UNKNOWN INDICATION
     Dosage: 50 MG, UNK
     Route: 065
  2. B10 [Suspect]
     Active Substance: SODIUM BICARBONATE
     Indication: PRODUCT USED FOR UNKNOWN INDICATION
     Route: 048
  3. ABATACEPT [Suspect]
     Active Substance: ABATACEPT
     Indication: RHEUMATOID ARTHRITIS
     Dosage: 750 MG, Q4WK
     Route: 042
     Dates: start: 20161107

REACTIONS (14)
  - Pruritus [Recovering/Resolving]
  - Back pain [Unknown]
  - Arthralgia [Unknown]
  - Inflammation [Unknown]
  - Oedema peripheral [Unknown]
  - Hypoaesthesia [Unknown]
  - Musculoskeletal stiffness [Unknown]
  - Blister [Unknown]
  - Malignant melanoma [Unknown]
  - Adverse event [Unknown]
  - Erythema [Recovering/Resolving]
  - Joint swelling [Unknown]
  - Pain in extremity [Unknown]
  - Stenosis [Unknown]

NARRATIVE: CASE EVENT DATE: 20170712
